FAERS Safety Report 8165728-9 (Version None)
Quarter: 2012Q1

REPORT INFORMATION
  Report Type: 
  Country: None (occurrence: None)
  Receive Date: 20120227
  Receipt Date: 20110228
  Transmission Date: 20120608
  Serious: No
  Sender: FDA-Public Use
  Company Number: US-MYLANLABS-2011S1000595

PATIENT
  Age: 19 Year
  Sex: Female
  Weight: 65.77 kg

DRUGS (1)
  1. AMNESTEEM [Suspect]
     Indication: ACNE
     Route: 048
     Dates: start: 20100601, end: 20101215

REACTIONS (2)
  - VISUAL IMPAIRMENT [None]
  - NIGHT BLINDNESS [None]
